FAERS Safety Report 6306197-0 (Version None)
Quarter: 2009Q3

REPORT INFORMATION
  Report Type: 
  Country: None (occurrence: None)
  Receive Date: 20090810
  Receipt Date: 20090724
  Transmission Date: 20100115
  Serious: Yes (Hospitalization)
  Sender: FDA-Public Use
  Company Number: 2009AL002551

PATIENT
  Age: 55 Year
  Sex: Female

DRUGS (8)
  1. DIGOXIN [Suspect]
     Dosage: PO
     Route: 048
  2. POTASSIUM CHLORIDE [Concomitant]
  3. ALDACTONE [Concomitant]
  4. METFORMIN HCL [Concomitant]
  5. COREG [Concomitant]
  6. AMARYL [Concomitant]
  7. GLUCAGON [Concomitant]
  8. NOVOLIN R [Concomitant]

REACTIONS (6)
  - CARDIOACTIVE DRUG LEVEL INCREASED [None]
  - ECONOMIC PROBLEM [None]
  - HYPOVOLAEMIA [None]
  - ILL-DEFINED DISORDER [None]
  - MULTIPLE INJURIES [None]
  - RENAL FAILURE [None]
